FAERS Safety Report 17534585 (Version 1)
Quarter: 2020Q1

REPORT INFORMATION
  Report Type: Spontaneous
  Country: DE (occurrence: DE)
  Receive Date: 20200312
  Receipt Date: 20200312
  Transmission Date: 20200409
  Serious: Yes (Other)
  Sender: FDA-Public Use
  Company Number: DE-ASTRAZENECA-2020SE34583

PATIENT
  Age: 25032 Day
  Sex: Female

DRUGS (4)
  1. OMEPRAZOLE. [Suspect]
     Active Substance: OMEPRAZOLE
     Indication: GASTROOESOPHAGEAL REFLUX DISEASE
     Route: 048
     Dates: end: 201904
  2. NASONEX [Concomitant]
     Active Substance: MOMETASONE FUROATE
  3. EUTHYROX [Concomitant]
     Active Substance: LEVOTHYROXINE SODIUM
  4. PREDNISOLONE. [Concomitant]
     Active Substance: PREDNISOLONE
     Dosage: 5.0MG UNKNOWN

REACTIONS (28)
  - Skin disorder [Unknown]
  - Bronchitis [Unknown]
  - Obstructive airways disorder [Unknown]
  - Mitral valve incompetence [Unknown]
  - Breath sounds abnormal [Unknown]
  - Goitre [Unknown]
  - Eosinophilic granulomatosis with polyangiitis [Unknown]
  - Asthma [Unknown]
  - Dysphonia [Unknown]
  - Ear swelling [Unknown]
  - Anosmia [Recovered/Resolved]
  - Headache [Recovering/Resolving]
  - Traumatic haematoma [Unknown]
  - Fractional exhaled nitric oxide increased [Unknown]
  - Antineutrophil cytoplasmic antibody [Unknown]
  - Chronic sinusitis [Unknown]
  - Internal haemorrhage [Unknown]
  - Abdominal discomfort [Unknown]
  - Hyperventilation [Unknown]
  - Conjunctival disorder [Unknown]
  - Diaphragmatic disorder [Unknown]
  - Bone disorder [Unknown]
  - Vital capacity decreased [Unknown]
  - Rhinitis [Unknown]
  - Nasal congestion [Unknown]
  - Pharyngeal swelling [Unknown]
  - Adenomatous polyposis coli [Unknown]
  - Night sweats [Unknown]

NARRATIVE: CASE EVENT DATE: 20191219
